FAERS Safety Report 10642389 (Version 2)
Quarter: 2015Q1

REPORT INFORMATION
  Report Type: Spontaneous
  Country: CN (occurrence: None)
  Receive Date: 20141208
  Receipt Date: 20150106
  Transmission Date: 20150720
  Serious: Yes (Other)
  Sender: FDA-Public Use
  Company Number: CN2014GSK028361

PATIENT
  Age: 37 Year
  Sex: Male
  Weight: 70 kg

DRUGS (4)
  1. HEPTODIN [Suspect]
     Active Substance: LAMIVUDINE
     Indication: HEPATITIS B
     Route: 048
     Dates: start: 2004
  2. HEPTODIN [Suspect]
     Active Substance: LAMIVUDINE
     Indication: HEPATITIS B
     Dosage: 1
     Route: 048
     Dates: start: 2004
  3. TCM [Suspect]
     Active Substance: HERBALS
     Indication: HEPATITIS B
  4. UNSPECIFIED TCM () [Suspect]
     Active Substance: HERBALS
     Indication: HEPATITIS B

REACTIONS (3)
  - Viral load increased [None]
  - Drug resistance [None]
  - Hepatitis B [None]

NARRATIVE: CASE EVENT DATE: 2014
